FAERS Safety Report 10783940 (Version 1)
Quarter: 2015Q1

REPORT INFORMATION
  Report Type: Spontaneous
  Country: LK (occurrence: LK)
  Receive Date: 20150210
  Receipt Date: 20150210
  Transmission Date: 20150721
  Serious: Yes (Death, Hospitalization)
  Sender: FDA-Public Use
  Company Number: PHHY2015LK015148

PATIENT
  Age: 35 Year
  Sex: Female

DRUGS (3)
  1. AZATHIOPRINE. [Suspect]
     Active Substance: AZATHIOPRINE
     Indication: IMMUNOSUPPRESSION
     Route: 065
  2. CLOXACILLIN [Concomitant]
     Active Substance: CLOXACILLIN
     Indication: ANTIBIOTIC THERAPY
     Route: 065
  3. PREDNISOLONE. [Suspect]
     Active Substance: PREDNISOLONE
     Indication: IMMUNOSUPPRESSION
     Route: 065

REACTIONS (15)
  - Haemodynamic instability [Fatal]
  - Leukopenia [Fatal]
  - Sepsis [Fatal]
  - Pyrexia [Fatal]
  - Tenderness [Fatal]
  - Necrotising fasciitis [Fatal]
  - Skin warm [Fatal]
  - Anaemia [Fatal]
  - International normalised ratio increased [Fatal]
  - Aspartate aminotransferase increased [Fatal]
  - Blister [Fatal]
  - Septic shock [Fatal]
  - Metabolic acidosis [Fatal]
  - Erythema [Fatal]
  - Red blood cell sedimentation rate increased [Fatal]
